FAERS Safety Report 9679053 (Version 2)
Quarter: 2013Q4

REPORT INFORMATION
  Report Type: Report from Study
  Country: DE (occurrence: DE)
  Receive Date: 20131108
  Receipt Date: 20131108
  Transmission Date: 20140711
  Serious: Yes (Hospitalization)
  Sender: FDA-Public Use
  Company Number: DE-VERTEX PHARMACEUTICALS INC-000000000000001229

PATIENT
  Age: 56 Year
  Sex: Female
  Weight: 72 kg

DRUGS (4)
  1. VX-950 (TELAPREVIR) [Suspect]
     Indication: HEPATITIS C
     Dosage: 2250 MG, QD
     Route: 048
     Dates: start: 20120705, end: 20120717
  2. PEGASYS [Suspect]
     Indication: HEPATITIS C
     Dosage: 135 ?G, QW
     Route: 058
     Dates: start: 20120605
  3. COPEGUS [Suspect]
     Indication: HEPATITIS C
     Dosage: 1000 MG, QD
     Route: 048
     Dates: start: 20120605
  4. VICTRELIS [Concomitant]
     Indication: HEPATITIS C
     Dosage: 2400 MG, QD
     Dates: start: 20120718

REACTIONS (7)
  - Chest discomfort [Not Recovered/Not Resolved]
  - Electrocardiogram change [Not Recovered/Not Resolved]
  - Blood pressure increased [Not Recovered/Not Resolved]
  - General physical health deterioration [Not Recovered/Not Resolved]
  - Drug intolerance [Recovered/Resolved]
  - Hypertension [Recovered/Resolved]
  - Nausea [Not Recovered/Not Resolved]
